FAERS Safety Report 4600652-7 (Version None)
Quarter: 2005Q1

REPORT INFORMATION
  Report Type: 
  Country: None (occurrence: None)
  Receive Date: 20050304
  Receipt Date: 20050216
  Transmission Date: 20050727
  Serious: Yes (Hospitalization)
  Sender: FDA-Public Use
  Company Number: 2005-BP-01529NB

PATIENT
  Age: 72 Year
  Sex: Female

DRUGS (7)
  1. MOBIC [Suspect]
     Indication: OSTEOARTHRITIS
     Dosage: PO
     Route: 048
     Dates: end: 20010907
  2. OPALMON (LIMAPROST) (TA) [Suspect]
     Indication: SPINAL COLUMN STENOSIS
     Dosage: 3 ANZ (NR) PO
     Route: 048
     Dates: end: 20010907
  3. MYONAL (EPERISONE HYDROCHLORIDE) (TA) [Concomitant]
  4. CYANOCOBALAMIN [Concomitant]
  5. HERBESSER (DILTIAZEM HYDROCHLORIDE) (TA) [Concomitant]
  6. GASMOTIN (MOSAPRIDE CITRATE) (TA) [Concomitant]
  7. DEPAS (ETIZOLAM) (TA) [Concomitant]

REACTIONS (2)
  - DISEASE RECURRENCE [None]
  - DIVERTICULITIS INTESTINAL HAEMORRHAGIC [None]
